FAERS Safety Report 14461307 (Version 1)
Quarter: 2018Q1

REPORT INFORMATION
  Report Type: Spontaneous
  Country: US (occurrence: US)
  Receive Date: 20180130
  Receipt Date: 20180130
  Transmission Date: 20180509
  Serious: Yes (Life-Threatening, Hospitalization)
  Sender: FDA-Public Use
  Company Number: US-TEVA-2018-US-853793

PATIENT
  Age: 61 Year
  Sex: Female

DRUGS (1)
  1. AMLODIPINE [Suspect]
     Active Substance: AMLODIPINE BESYLATE
     Indication: INTENTIONAL OVERDOSE
     Route: 065

REACTIONS (4)
  - Metabolic acidosis [Recovered/Resolved]
  - Haemodynamic instability [Recovered/Resolved]
  - Renal impairment [Recovered/Resolved]
  - Intentional overdose [Recovered/Resolved]
